FAERS Safety Report 9293979 (Version 1)
Quarter: 2013Q1

REPORT INFORMATION
  Report Type: Spontaneous
  Country: US (occurrence: None)
  Receive Date: 20121217
  Receipt Date: 20121217
  Transmission Date: 20140127
  Serious: Yes (Other)
  Sender: FDA-Public Use
  Company Number: PHEH2012US011380

PATIENT
  Age: 62 Year
  Sex: Female
  Weight: 160.03 kg

DRUGS (1)
  1. EXFORGE HCT [Suspect]
     Dosage: 1 DF (VALS 320MG, AMLO 10MG, HCTZ 25MG), QD, ORAL
     Route: 048
     Dates: start: 20120501, end: 200306

REACTIONS (1)
  - Tachycardia [None]
